FAERS Safety Report 14022935 (Version 1)
Quarter: 2017Q3

REPORT INFORMATION
  Report Type: Spontaneous
  Country: JP (occurrence: JP)
  Receive Date: 20170929
  Receipt Date: 20170929
  Transmission Date: 20171128
  Serious: Yes (Other)
  Sender: FDA-Public Use
  Company Number: JP-009507513-1709JPN002685J

PATIENT
  Age: 86 Year
  Sex: Female

DRUGS (2)
  1. JANUVIA [Suspect]
     Active Substance: SITAGLIPTIN PHOSPHATE
     Dosage: UNK
     Route: 048
  2. INSULIN [Concomitant]
     Active Substance: INSULIN NOS
     Route: 065

REACTIONS (2)
  - Pemphigoid [Unknown]
  - Pancreatic atrophy [Unknown]

NARRATIVE: CASE EVENT DATE: 20170927
